FAERS Safety Report 5328994-0 (Version None)
Quarter: 2007Q2

REPORT INFORMATION
  Report Type: 
  Country: None (occurrence: None)
  Receive Date: 20070515
  Receipt Date: 20070508
  Transmission Date: 20071010
  Serious: Yes (Death, Other)
  Sender: FDA-Public Use
  Company Number: 163-21880-07050597

PATIENT

DRUGS (2)
  1. REVLIMID [Suspect]
     Indication: MULTIPLE MYELOMA
     Dosage: 25 MG, ON DAYS 1-21 EVERY 28 DAYS.; ORAL
     Route: 048
  2. DEXAMETHASONE TAB [Suspect]
     Indication: MULTIPLE MYELOMA
     Dosage: 40 MG, DYS 1-4, 9-12, 17-20 OR 1,8,15,22 Q28D, ORAL
     Route: 048

REACTIONS (8)
  - DISEASE PROGRESSION [None]
  - DRUG TOXICITY [None]
  - EMBOLISM [None]
  - HYPERGLYCAEMIA [None]
  - INFECTION [None]
  - MYOCARDIAL ISCHAEMIA [None]
  - NEUROPATHY [None]
  - PNEUMONITIS [None]
